FAERS Safety Report 7001162-2 (Version None)
Quarter: 2010Q3

REPORT INFORMATION
  Report Type: 
  Country: None (occurrence: None)
  Receive Date: 20100920
  Receipt Date: 20090721
  Transmission Date: 20110219
  Serious: Yes (Other)
  Sender: FDA-Public Use
  Company Number: US-ASTRAZENECA-2007UW04485

PATIENT
  Age: 17596 Day
  Sex: Female
  Weight: 92.5 kg

DRUGS (6)
  1. SEROQUEL [Suspect]
     Dosage: 20 TO 100 MG
     Route: 048
     Dates: start: 20040209
  2. LEXAPRO [Concomitant]
     Dates: start: 20050906
  3. LAMICTAL [Concomitant]
     Dates: start: 20050906
  4. TEMAZEPAM [Concomitant]
     Dates: start: 20050906
  5. FLUDROCORTISONE [Concomitant]
     Dates: start: 20040511
  6. AMITRIPTYLINE HCL [Concomitant]
     Route: 048
     Dates: start: 20040209

REACTIONS (3)
  - DIABETES MELLITUS [None]
  - DIABETIC KETOACIDOSIS [None]
  - PANCREATITIS [None]
